FAERS Safety Report 20592137 (Version 1)
Quarter: 2022Q1

REPORT INFORMATION
  Report Type: Spontaneous
  Country: US (occurrence: None)
  Receive Date: 20220314
  Receipt Date: 20220314
  Transmission Date: 20220423
  Serious: No
  Sender: FDA-Public Use
  Company Number: US-ROCHE-2818695

PATIENT
  Age: 44 Year
  Sex: Female
  Weight: 101.24 kg

DRUGS (12)
  1. XOLAIR [Suspect]
     Active Substance: OMALIZUMAB
     Indication: Urticaria
     Dosage: DOSAGE STRENGTH: 150MG/ML
     Route: 058
     Dates: start: 20210416
  2. XOLAIR [Suspect]
     Active Substance: OMALIZUMAB
  3. XOLAIR [Suspect]
     Active Substance: OMALIZUMAB
     Indication: Chronic spontaneous urticaria
     Dosage: PREFILLED SYRINGE 150MG/ML
     Route: 058
     Dates: start: 202103
  4. XOLAIR [Suspect]
     Active Substance: OMALIZUMAB
  5. XOLAIR [Suspect]
     Active Substance: OMALIZUMAB
     Indication: Chronic spontaneous urticaria
     Dosage: ONGOING YES, 150MG PER ARM ; 300MG TOTAL
     Route: 058
     Dates: start: 20210423
  6. HYDROXYZINE [Concomitant]
     Active Substance: HYDROXYZINE HYDROCHLORIDE
     Indication: Chronic spontaneous urticaria
     Dates: start: 2018
  7. FLUTICASONE;UMECLIDINIUM;VILANTEROL [Concomitant]
     Indication: Asthma
  8. ALBUTEROL [Concomitant]
     Active Substance: ALBUTEROL
     Indication: Asthma
     Dosage: 2.5MG/3ML
  9. MAGNESIUM [Concomitant]
     Active Substance: MAGNESIUM
  10. SELENIUM [Concomitant]
     Active Substance: SELENIUM
     Indication: Autoimmune thyroiditis
  11. HERBALS [Concomitant]
     Active Substance: HERBALS
  12. DEXAMETHASONE [Concomitant]
     Active Substance: DEXAMETHASONE
     Indication: Angioedema
     Dates: start: 2018

REACTIONS (11)
  - Arthralgia [Not Recovered/Not Resolved]
  - Myalgia [Not Recovered/Not Resolved]
  - Muscle spasms [Unknown]
  - Asthenia [Unknown]
  - Abdominal discomfort [Unknown]
  - Diarrhoea [Not Recovered/Not Resolved]
  - Fatigue [Unknown]
  - Drug ineffective [Unknown]
  - Vomiting [Not Recovered/Not Resolved]
  - Nausea [Not Recovered/Not Resolved]
  - Chest discomfort [Not Recovered/Not Resolved]

NARRATIVE: CASE EVENT DATE: 20210423
